FAERS Safety Report 26215470 (Version 1)
Quarter: 2025Q4

REPORT INFORMATION
  Report Type: Spontaneous
  Country: US (occurrence: US)
  Receive Date: 20251231
  Receipt Date: 20251231
  Transmission Date: 20260118
  Serious: Yes (Other)
  Sender: BRISTOL-MYERS SQUIBB COMPANY
  Company Number: US-BRISTOL-MYERS SQUIBB COMPANY-2025-173760

PATIENT
  Age: 50 Year
  Sex: Female

DRUGS (1)
  1. ZEPOSIA [Suspect]
     Active Substance: OZANIMOD HYDROCHLORIDE
     Indication: Multiple sclerosis
     Dosage: 1 TIME A DAY
     Route: 048
     Dates: start: 202512

REACTIONS (8)
  - Fatigue [Unknown]
  - Affective disorder [Unknown]
  - Sleep disorder [Unknown]
  - Depressed level of consciousness [Unknown]
  - Pain [Unknown]
  - Mobility decreased [Unknown]
  - Disturbance in attention [Unknown]
  - Activities of daily living decreased [Unknown]

NARRATIVE: CASE EVENT DATE: 20251201
